FAERS Safety Report 21880686 (Version 1)
Quarter: 2023Q1

REPORT INFORMATION
  Report Type: Spontaneous
  Country: US (occurrence: None)
  Receive Date: 20230118
  Receipt Date: 20230118
  Transmission Date: 20230418
  Serious: Yes (Other)
  Sender: FDA-Public Use
  Company Number: 2022A411864

PATIENT
  Age: 68 Year
  Weight: 78.7 kg

DRUGS (2)
  1. EVUSHELD [Suspect]
     Active Substance: CILGAVIMAB\TIXAGEVIMAB
     Indication: Type III immune complex mediated reaction
     Dosage: 300/300 MG UNKNOWN
     Route: 030
     Dates: start: 20221212
  2. EVUSHELD [Suspect]
     Active Substance: CILGAVIMAB\TIXAGEVIMAB
     Indication: Autoimmune hepatitis
     Dosage: 300/300 MG UNKNOWN
     Route: 030
     Dates: start: 20221212

REACTIONS (12)
  - Myalgia [Recovered/Resolved]
  - Bone pain [Recovered/Resolved]
  - Body temperature increased [Recovered/Resolved]
  - Nausea [Recovered/Resolved]
  - Chills [Recovered/Resolved]
  - Fatigue [Recovered/Resolved]
  - Oropharyngeal pain [Recovered/Resolved]
  - Pain [Recovered/Resolved]
  - Dizziness [Recovered/Resolved]
  - Feeling cold [Recovered/Resolved]
  - Pyrexia [Recovered/Resolved]
  - Off label use [Recovered/Resolved]
